FAERS Safety Report 6095061-0 (Version None)
Quarter: 2009Q1

REPORT INFORMATION
  Report Type: 
  Country: None (occurrence: None)
  Receive Date: 20090227
  Receipt Date: 20080103
  Transmission Date: 20090719
  Serious: No
  Sender: FDA-Public Use
  Company Number: A0702205A

PATIENT
  Sex: Male

DRUGS (2)
  1. LAMICTAL [Suspect]
     Indication: DRUG USE FOR UNKNOWN INDICATION
     Dosage: 400MGD PER DAY
     Route: 048
  2. CONCURRENT MEDICATIONS [Concomitant]

REACTIONS (4)
  - ACNE [None]
  - LOCAL SWELLING [None]
  - PRURITUS [None]
  - SKIN DISORDER [None]
